FAERS Safety Report 21563949 (Version 1)
Quarter: 2022Q4

REPORT INFORMATION
  Report Type: Report from Study
  Country: US (occurrence: US)
  Receive Date: 20221108
  Receipt Date: 20221108
  Transmission Date: 20230113
  Serious: No
  Sender: FDA-Public Use
  Company Number: US-ABBVIE-4151472

PATIENT
  Sex: Male

DRUGS (3)
  1. HUMIRA [Suspect]
     Active Substance: ADALIMUMAB
     Indication: Hidradenitis
     Dosage: CF
     Route: 058
  2. Moderna [Concomitant]
     Indication: COVID-19 immunisation
     Route: 030
     Dates: start: 20211108, end: 20211108
  3. Janssen Biotech [Concomitant]
     Indication: COVID-19 immunisation
     Route: 030
     Dates: start: 20210312, end: 20210312

REACTIONS (1)
  - Hidradenitis [Not Recovered/Not Resolved]
